FAERS Safety Report 23657358 (Version 1)
Quarter: 2024Q1

REPORT INFORMATION
  Report Type: Spontaneous
  Country: US (occurrence: None)
  Receive Date: 20240320
  Receipt Date: 20240320
  Transmission Date: 20240409
  Serious: Yes (Life-Threatening)
  Sender: FDA-Public Use
  Company Number: None

PATIENT
  Age: 14 Year
  Sex: Female
  Weight: 65.5 kg

DRUGS (1)
  1. ASPARLAS [Suspect]
     Active Substance: CALASPARGASE PEGOL-MKNL
     Indication: Non-Hodgkin^s lymphoma
     Dosage: 3750 IU INTERNATIONAL UNIT PER PROTOCOL INTRAVENOUS
     Route: 042

REACTIONS (3)
  - Papilloedema [None]
  - Cranial nerve paralysis [None]
  - Cerebral venous sinus thrombosis [None]

NARRATIVE: CASE EVENT DATE: 20231224
